FAERS Safety Report 23676983 (Version 1)
Quarter: 2024Q1

REPORT INFORMATION
  Report Type: Other
  Country: GB (occurrence: GB)
  Receive Date: 20240327
  Receipt Date: 20240327
  Transmission Date: 20240410
  Serious: Yes (Hospitalization, Other)
  Sender: FDA-Public Use
  Company Number: GB-Marksans Pharma Limited-2154879

PATIENT
  Age: 53 Year
  Sex: Female

DRUGS (10)
  1. GABAPENTIN [Suspect]
     Active Substance: GABAPENTIN
     Indication: Product used for unknown indication
     Route: 065
  2. N-DESETHYLISOTONITAZENE [Suspect]
     Active Substance: N-DESETHYLISOTONITAZENE
     Route: 065
  3. QUETIAPINE [Suspect]
     Active Substance: QUETIAPINE
     Route: 065
  4. PREGABALIN [Suspect]
     Active Substance: PREGABALIN
     Route: 065
  5. PHENACETIN [Suspect]
     Active Substance: PHENACETIN
     Route: 065
  6. MORPHINE [Suspect]
     Active Substance: MORPHINE
     Route: 065
  7. LEVAMISOLE [Suspect]
     Active Substance: LEVAMISOLE
     Route: 065
  8. MDMB-4EN-PINACA [Suspect]
     Active Substance: MDMB-4EN-PINACA
     Route: 065
  9. CODEINE [Suspect]
     Active Substance: CODEINE
     Route: 065
  10. COCAINE [Suspect]
     Active Substance: COCAINE
     Route: 065

REACTIONS (3)
  - Coma [Unknown]
  - Hypercapnia [Unknown]
  - Bradypnoea [Unknown]

NARRATIVE: CASE EVENT DATE: 20030101
